FAERS Safety Report 9627261 (Version 2)
Quarter: 2013Q4

REPORT INFORMATION
  Report Type: Not Available
  Country: US (occurrence: US)
  Receive Date: 20131016
  Receipt Date: 20131016
  Transmission Date: 20140711
  Serious: Yes (Other)
  Sender: FDA-Public Use
  Company Number: US-LUNDBECK-DKLU1084810

PATIENT
  Sex: Female
  Weight: 7.18 kg

DRUGS (8)
  1. SABRIL (TABLET) [Suspect]
     Indication: INFANTILE SPASMS
     Route: 048
     Dates: start: 20120803
  2. PHENOBARBITAL [Suspect]
     Indication: PRODUCT USED FOR UNKNOWN INDICATION
  3. TOPAMAX [Concomitant]
     Indication: PRODUCT USED FOR UNKNOWN INDICATION
     Route: 048
  4. TOPAMAX [Concomitant]
     Route: 048
  5. PYRIDOXINE HCL [Concomitant]
     Indication: PRODUCT USED FOR UNKNOWN INDICATION
  6. PYRIDOXINE HCL [Concomitant]
     Dates: start: 20120802
  7. ALBUTEROL SULFATE [Concomitant]
     Indication: PRODUCT USED FOR UNKNOWN INDICATION
  8. METOCLOPRAMIDE HCL [Concomitant]
     Indication: PRODUCT USED FOR UNKNOWN INDICATION

REACTIONS (4)
  - Infantile spasms [Recovering/Resolving]
  - Urticaria [Unknown]
  - Upper respiratory tract infection [Unknown]
  - Cough [Unknown]
